FAERS Safety Report 7327313-8 (Version None)
Quarter: 2011Q1

REPORT INFORMATION
  Report Type: 
  Country: None (occurrence: None)
  Receive Date: 20110302
  Receipt Date: 20110221
  Transmission Date: 20110831
  Serious: Yes (Other)
  Sender: FDA-Public Use
  Company Number: JP-GILEAD-E2B_00000996

PATIENT
  Age: 66 Year
  Sex: Female

DRUGS (4)
  1. HEPSERA [Suspect]
     Indication: HEPATITIS B
     Dosage: 10MG PER DAY
     Route: 048
     Dates: start: 20101110
  2. ENTECAVIR [Concomitant]
     Indication: HEPATITIS B
     Dosage: .5MG PER DAY
     Route: 048
     Dates: start: 20061214
  3. UNKNOWN DRUG [Concomitant]
     Indication: PRODUCT USED FOR UNKNOWN INDICATION
     Route: 065
     Dates: start: 19980101
  4. ASPIRIN [Concomitant]
     Indication: CEREBRAL INFARCTION
     Dosage: 100MG PER DAY
     Route: 048
     Dates: start: 20061031

REACTIONS (3)
  - IRON DEFICIENCY ANAEMIA [None]
  - MEAN CELL VOLUME INCREASED [None]
  - HAEMOGLOBIN DECREASED [None]
